FAERS Safety Report 6108673-2 (Version None)
Quarter: 2009Q1

REPORT INFORMATION
  Report Type: 
  Country: None (occurrence: None)
  Receive Date: 20090305
  Receipt Date: 20090223
  Transmission Date: 20090719
  Serious: Yes (Hospitalization)
  Sender: FDA-Public Use
  Company Number: US025453

PATIENT
  Age: 25 Year
  Sex: Male

DRUGS (12)
  1. TRISENOX [Suspect]
     Indication: ACUTE PROMYELOCYTIC LEUKAEMIA
     Dosage: 10 MG QD INTRAVENOUS DRIP
     Route: 041
     Dates: start: 20090121, end: 20090205
  2. PHENYTOIN [Concomitant]
  3. TOSUFLOXACIN TOSILATE [Concomitant]
  4. OXETHAZAINE [Concomitant]
  5. LANSOPRAZOLE [Concomitant]
  6. VALPROATE SODIUM [Concomitant]
  7. SULFAMETHOXAZOLE AND TRIMETHOPRIM [Concomitant]
  8. ALENDRONATE SODIUM [Concomitant]
  9. BROTIZOLAM [Concomitant]
  10. CLINDAMYCIN PHOSPHATE [Concomitant]
  11. OFLOXACIN [Concomitant]
  12. FENTANYL-25 [Concomitant]

REACTIONS (7)
  - CARDIAC TAMPONADE [None]
  - CHEST PAIN [None]
  - HAEMOGLOBIN DECREASED [None]
  - HEPATIC ENZYME INCREASED [None]
  - MELAENA [None]
  - PERICARDIAL EFFUSION [None]
  - PLEURAL EFFUSION [None]
